FAERS Safety Report 9951045 (Version 2)
Quarter: 2014Q1

REPORT INFORMATION
  Report Type: Report from Study
  Country: PR (occurrence: PR)
  Receive Date: 20140304
  Receipt Date: 20140304
  Transmission Date: 20141002
  Serious: No
  Sender: FDA-Public Use
  Company Number: PR-ABBVIE-12P-131-0903044-00

PATIENT
  Age: 32 Year
  Sex: Female
  Weight: 88.53 kg

DRUGS (4)
  1. HUMIRA 40 MG/0.8 ML PEN [Suspect]
     Indication: CROHN^S DISEASE
     Route: 058
     Dates: start: 2011, end: 201202
  2. HUMIRA 40 MG/0.8 ML PEN [Suspect]
     Dates: start: 201202, end: 201301
  3. PROFFERIN FORTE [Concomitant]
     Indication: ANAEMIA
  4. NEURIN [Concomitant]
     Indication: ANAEMIA
     Route: 060
     Dates: start: 201209

REACTIONS (1)
  - Nasopharyngitis [Recovered/Resolved]
